FAERS Safety Report 6435849-7 (Version None)
Quarter: 2009Q4

REPORT INFORMATION
  Report Type: 
  Country: None (occurrence: None)
  Receive Date: 20091111
  Receipt Date: 20091029
  Transmission Date: 20100525
  Serious: Yes (Hospitalization, Disabling)
  Sender: FDA-Public Use
  Company Number: US-ELI_LILLY_AND_COMPANY-US200910007733

PATIENT
  Sex: Male

DRUGS (1)
  1. STRATTERA [Suspect]
     Indication: ATTENTION DEFICIT/HYPERACTIVITY DISORDER
     Dosage: 80 MG, DAILY (1/D)
     Route: 065

REACTIONS (12)
  - ABNORMAL BEHAVIOUR [None]
  - ADVERSE EVENT [None]
  - CONTUSION [None]
  - DIZZINESS [None]
  - DRUG WITHDRAWAL SYNDROME [None]
  - FALL [None]
  - FEEDING DISORDER [None]
  - GAIT DISTURBANCE [None]
  - INJURY [None]
  - REHABILITATION THERAPY [None]
  - SEXUAL DYSFUNCTION [None]
  - SLEEP DISORDER [None]
